FAERS Safety Report 16003820 (Version 1)
Quarter: 2019Q1

REPORT INFORMATION
  Report Type: Spontaneous
  Country: IT (occurrence: IT)
  Receive Date: 20190226
  Receipt Date: 20190226
  Transmission Date: 20190418
  Serious: Yes (Disabling)
  Sender: FDA-Public Use
  Company Number: IT-ACCORD-108859

PATIENT
  Age: 5 Decade
  Sex: Female

DRUGS (1)
  1. CAPECITABINE. [Suspect]
     Active Substance: CAPECITABINE
     Indication: GASTRIC CANCER
     Dosage: THERAPY WAS COMPLETED

REACTIONS (2)
  - Rash [Recovered/Resolved]
  - Skin hyperpigmentation [Recovered/Resolved]
